FAERS Safety Report 25612923 (Version 1)
Quarter: 2025Q3

REPORT INFORMATION
  Report Type: Spontaneous
  Country: US (occurrence: None)
  Receive Date: 20250726
  Receipt Date: 20250726
  Transmission Date: 20251021
  Serious: Yes (Life-Threatening)
  Sender: FDA-CTU
  Company Number: None

PATIENT
  Age: 36 Year
  Sex: Male
  Weight: 83.25 kg

DRUGS (1)
  1. HERBALS\MITRAGYNINE [Suspect]
     Active Substance: HERBALS\MITRAGYNINE
     Indication: Asthenia
     Route: 048
     Dates: start: 20250701, end: 20250703

REACTIONS (4)
  - Dyspnoea [None]
  - Abdominal pain upper [None]
  - Confusional state [None]
  - Heart rate increased [None]

NARRATIVE: CASE EVENT DATE: 20250703
